FAERS Safety Report 14315302 (Version 6)
Quarter: 2021Q4

REPORT INFORMATION
  Report Type: Report from Study
  Country: CA (occurrence: CA)
  Receive Date: 20171221
  Receipt Date: 20211224
  Transmission Date: 20220303
  Serious: Yes (Hospitalization, Other)
  Sender: FDA-Public Use
  Company Number: CA-TAKEDA-2017TUS004747

PATIENT
  Age: 59 Year
  Sex: Male

DRUGS (21)
  1. VEDOLIZUMAB [Suspect]
     Active Substance: VEDOLIZUMAB
     Indication: Colitis ulcerative
     Dosage: 300 MILLIGRAM
     Route: 042
     Dates: start: 20170118
  2. VEDOLIZUMAB [Suspect]
     Active Substance: VEDOLIZUMAB
     Dosage: 300 MILLIGRAM
     Route: 042
  3. VEDOLIZUMAB [Suspect]
     Active Substance: VEDOLIZUMAB
     Dosage: 300 MILLIGRAM
     Route: 042
  4. VEDOLIZUMAB [Suspect]
     Active Substance: VEDOLIZUMAB
     Dosage: 300 MILLIGRAM
     Route: 042
  5. FUCIDIN H                          /01518501/ [Concomitant]
     Dosage: 2 PERCENT, BID
     Route: 061
     Dates: start: 20151128
  6. FUCIDIN H                          /01518501/ [Concomitant]
     Dosage: UNK
  7. BISOPROLOL FUMARATE [Concomitant]
     Active Substance: BISOPROLOL FUMARATE
     Indication: Cardiovascular disorder
     Dosage: 5 MILLIGRAM
     Dates: start: 20151123
  8. JANUVIA [Concomitant]
     Active Substance: SITAGLIPTIN PHOSPHATE
     Indication: Diabetes mellitus
     Dosage: 100 MILLIGRAM, QD
     Route: 048
     Dates: start: 20151123
  9. QUINAPRIL HYDROCHLORIDE [Concomitant]
     Active Substance: QUINAPRIL HYDROCHLORIDE
     Dosage: 40 MILLIGRAM, QD
     Dates: start: 20151123
  10. FOLIC ACID [Concomitant]
     Active Substance: FOLIC ACID
     Dosage: 5 MILLIGRAM, QD
     Route: 048
     Dates: start: 20151123
  11. ATORVASTATIN CALCIUM [Concomitant]
     Active Substance: ATORVASTATIN CALCIUM
     Indication: Blood cholesterol
     Dosage: 10 MILLIGRAM, QD
     Dates: start: 20151123
  12. AZITHROMYCIN [Concomitant]
     Active Substance: AZITHROMYCIN
     Dosage: 250 MILLIGRAM
     Dates: start: 20150919
  13. CO PANTOPRAZOLE [Concomitant]
     Indication: Ulcer
     Dosage: 40 MILLIGRAM, BID
     Dates: start: 20150914
  14. METFORMIN [Concomitant]
     Active Substance: METFORMIN HYDROCHLORIDE
     Indication: Diabetes mellitus
     Dosage: 500 MILLIGRAM, BID
     Dates: start: 20150914
  15. AMLODIPINE [Concomitant]
     Active Substance: AMLODIPINE BESYLATE
     Indication: Cardiovascular disorder
     Dosage: 5 MILLIGRAM, QD
     Dates: start: 20150825
  16. APO GLICLAZIDE [Concomitant]
     Indication: Diabetes mellitus
     Dosage: 30 MILLIGRAM, BID
     Dates: start: 20150825
  17. SULFASALAZINE [Concomitant]
     Active Substance: SULFASALAZINE
     Dosage: 500 MILLIGRAM, BID
     Dates: start: 20150824
  18. SALOFALK                           /00000301/ [Concomitant]
     Dosage: 4 GRAM
     Route: 054
     Dates: start: 20150722
  19. NEVANAC [Concomitant]
     Active Substance: NEPAFENAC
     Indication: Eye disorder
     Dosage: 0.1 PERCENT, TID
     Route: 047
     Dates: start: 20150713
  20. POLYETHYLENE GLYCOL 3350\POTASSIUM CHLORIDE\SODIUM BICARBONATE\SODIUM [Concomitant]
     Active Substance: POLYETHYLENE GLYCOL 3350\POTASSIUM CHLORIDE\SODIUM BICARBONATE\SODIUM CHLORIDE\SODIUM SULFATE
     Dosage: UNK
  21. REMICADE [Concomitant]
     Active Substance: INFLIXIMAB
     Dosage: UNK

REACTIONS (6)
  - Pneumonia [Not Recovered/Not Resolved]
  - Cardiac pacemaker insertion [Recovered/Resolved]
  - Pulmonary oedema [Recovered/Resolved]
  - Aortic valve stenosis [Recovered/Resolved]
  - Blood pressure increased [Unknown]
  - Pyrexia [Not Recovered/Not Resolved]

NARRATIVE: CASE EVENT DATE: 20170101
